FAERS Safety Report 6260618-0 (Version None)
Quarter: 2009Q3

REPORT INFORMATION
  Report Type: 
  Country: None (occurrence: None)
  Receive Date: 20090708
  Receipt Date: 20090629
  Transmission Date: 20100115
  Serious: Yes (Disabling, Other)
  Sender: FDA-Public Use
  Company Number: GB-ASTRAZENECA-2009GB01393

PATIENT
  Sex: Male
  Weight: 6.4 kg

DRUGS (2)
  1. ZOLADEX [Suspect]
     Indication: PROSTATE CANCER
     Route: 058
     Dates: start: 20081201
  2. CYPROTERONE [Concomitant]
     Indication: BLOOD TESTOSTERONE INCREASED
     Dates: start: 20090101, end: 20090601

REACTIONS (4)
  - PENILE PAIN [None]
  - PENILE SIZE REDUCED [None]
  - TESTICULAR ATROPHY [None]
  - TESTICULAR PAIN [None]
